FAERS Safety Report 5553430-9 (Version None)
Quarter: 2007Q4

REPORT INFORMATION
  Report Type: 
  Country: None (occurrence: None)
  Receive Date: 20071211
  Receipt Date: 20071130
  Transmission Date: 20080405
  Serious: No
  Sender: FDA-Public Use
  Company Number: JPI-P-002564

PATIENT
  Age: 53 Year
  Sex: Female

DRUGS (4)
  1. XYREM [Suspect]
     Indication: CATAPLEXY
     Dosage: 9 GM (4.5 GM, 2 IN 1 D), ORAL
     Route: 048
     Dates: start: 20060301
  2. XYREM [Suspect]
     Indication: NARCOLEPSY
     Dosage: 9 GM (4.5 GM, 2 IN 1 D), ORAL
     Route: 048
     Dates: start: 20060301
  3. METHYLPHENIDATE HCL [Concomitant]
  4. ALPRAZOLAM [Concomitant]

REACTIONS (4)
  - DEPRESSION [None]
  - DRUG ABUSE [None]
  - MEMORY IMPAIRMENT [None]
  - SURGERY [None]
